FAERS Safety Report 14257816 (Version 2)
Quarter: 2017Q4

REPORT INFORMATION
  Report Type: Spontaneous
  Country: NL (occurrence: NL)
  Receive Date: 20171207
  Receipt Date: 20171229
  Transmission Date: 20180321
  Serious: Yes (Other)
  Sender: FDA-Public Use
  Company Number: NL-ACCORD-061729

PATIENT
  Sex: Female

DRUGS (4)
  1. CARBOPLATIN. [Suspect]
     Active Substance: CARBOPLATIN
     Indication: METASTASES TO LIVER
     Dosage: AUC 5, ALSO RECEIVED 2 CYCLES IN 2008, AUC 4 AND 3 CYCLES IN 2006, AUC 6
     Dates: start: 2003
  2. LETROZOLE. [Concomitant]
     Active Substance: LETROZOLE
     Dates: start: 201408
  3. PACLITAXEL/PACLITAXEL LIPOSOME [Suspect]
     Active Substance: PACLITAXEL
     Indication: METASTASES TO LIVER
  4. CISPLATIN. [Suspect]
     Active Substance: CISPLATIN
     Indication: METASTASES TO LIVER
     Dates: start: 2011

REACTIONS (2)
  - Diabetic neuropathy [Unknown]
  - Condition aggravated [Unknown]
